FAERS Safety Report 23172201 (Version 3)
Quarter: 2023Q4

REPORT INFORMATION
  Report Type: Spontaneous
  Country: PT (occurrence: PT)
  Receive Date: 20231110
  Receipt Date: 20231219
  Transmission Date: 20240110
  Serious: Yes (Other)
  Sender: FDA-Public Use
  Company Number: PT-SUN PHARMACEUTICAL INDUSTRIES LTD-2023R1-416848

PATIENT
  Age: 70 Year
  Sex: Male

DRUGS (1)
  1. IRON SUCROSE [Suspect]
     Active Substance: IRON SUCROSE
     Indication: Hereditary haemorrhagic telangiectasia
     Dosage: UNK
     Route: 042

REACTIONS (1)
  - Hypophosphataemic osteomalacia [Recovering/Resolving]
